FAERS Safety Report 6860068-X (Version None)
Quarter: 2010Q3

REPORT INFORMATION
  Report Type: 
  Country: None (occurrence: None)
  Receive Date: 20100720
  Receipt Date: 20100709
  Transmission Date: 20110219
  Serious: Yes (Other)
  Sender: FDA-Public Use
  Company Number: FR-AMGEN-US387515

PATIENT
  Sex: Female

DRUGS (4)
  1. ENBREL [Suspect]
     Indication: ANKYLOSING SPONDYLITIS
     Dosage: PREFILLED SYRINGE, 50 MG ONCE WEEKLY
     Route: 058
     Dates: start: 20091001, end: 20091201
  2. ENBREL [Suspect]
     Dosage: PREFILLED PEN, 50 MG ONCE WEEKLY
     Route: 058
     Dates: start: 20100107, end: 20100201
  3. ENBREL [Suspect]
     Dosage: PREFILLED PEN, 3 INJECTIONS OF 50 MG ONCE WEEKLY
     Route: 058
     Dates: start: 20100401, end: 20100401
  4. ENBREL [Suspect]
     Dosage: PREFILLED PEN, 3 INJECTIONS OF 50 MG ONCE WEEKLY
     Route: 058
     Dates: start: 20100601, end: 20100601

REACTIONS (10)
  - ABSCESS LIMB [None]
  - ANIMAL SCRATCH [None]
  - CARPAL TUNNEL DECOMPRESSION [None]
  - H1N1 INFLUENZA [None]
  - LIMB INJURY [None]
  - MUSCLE CONTRACTURE [None]
  - NAUSEA [None]
  - PAIN [None]
  - SKIN IRRITATION [None]
  - WOUND INFECTION [None]
